FAERS Safety Report 4588167-6 (Version None)
Quarter: 2005Q1

REPORT INFORMATION
  Report Type: 
  Country: None (occurrence: None)
  Receive Date: 20050221
  Receipt Date: 20050203
  Transmission Date: 20050727
  Serious: Yes (Death)
  Sender: FDA-Public Use
  Company Number: US-GLAXOSMITHKLINE-A0543731A

PATIENT
  Age: 17 Year
  Sex: Male

DRUGS (3)
  1. PAXIL [Suspect]
     Indication: BIPOLAR DISORDER
     Route: 048
     Dates: start: 20040101
  2. STRATTERA [Suspect]
  3. NO CONCURRENT MEDICATION [Concomitant]

REACTIONS (2)
  - DRUG LEVEL INCREASED [None]
  - OVERDOSE [None]
